FAERS Safety Report 25974575 (Version 1)
Quarter: 2025Q4

REPORT INFORMATION
  Report Type: Spontaneous
  Country: EU (occurrence: EU)
  Receive Date: 20251029
  Receipt Date: 20251029
  Transmission Date: 20260118
  Serious: Yes (Hospitalization, Other)
  Sender: GLAXOSMITHKLINE
  Company Number: EU-GSK-FI2025EME080140

PATIENT
  Age: 66 Year
  Sex: Female

DRUGS (11)
  1. JEMPERLI [Suspect]
     Active Substance: DOSTARLIMAB-GXLY
     Indication: Endometrial cancer
     Dosage: 500 MG, Q3W
  2. JEMPERLI [Suspect]
     Active Substance: DOSTARLIMAB-GXLY
     Indication: Endometrial cancer metastatic
     Dosage: 500 MG
  3. JEMPERLI [Suspect]
     Active Substance: DOSTARLIMAB-GXLY
     Dosage: 500 MG
  4. PACLITAXEL [Concomitant]
     Active Substance: PACLITAXEL
     Indication: Endometrial cancer
     Dosage: UNK UNK, Q3W
  5. PACLITAXEL [Concomitant]
     Active Substance: PACLITAXEL
     Indication: Endometrial cancer metastatic
  6. CARBOPLATIN [Concomitant]
     Active Substance: CARBOPLATIN
     Indication: Endometrial cancer
     Dosage: UNK UNK, Q3W
  7. CARBOPLATIN [Concomitant]
     Active Substance: CARBOPLATIN
     Indication: Endometrial cancer metastatic
  8. DOCETAXEL [Concomitant]
     Active Substance: DOCETAXEL
     Indication: Endometrial cancer metastatic
     Dosage: UNK
  9. ATORVASTATIN [Concomitant]
     Active Substance: ATORVASTATIN
     Indication: Blood cholesterol increased
     Dosage: UNK
  10. CORTISONE [Concomitant]
     Active Substance: CORTISONE
     Indication: Diarrhoea
     Dosage: UNK
  11. CORTISONE [Concomitant]
     Active Substance: CORTISONE
     Indication: Pneumonitis

REACTIONS (13)
  - Colitis [Not Recovered/Not Resolved]
  - Pneumonitis [Recovering/Resolving]
  - Colitis ulcerative [Recovered/Resolved]
  - Malignant neoplasm progression [Recovered/Resolved]
  - Dyspepsia [Recovered/Resolved]
  - Faeces discoloured [Recovered/Resolved]
  - Anaemia [Recovered/Resolved]
  - C-reactive protein increased [Recovered/Resolved]
  - Troponin increased [Recovered/Resolved]
  - Thyroxine increased [Recovered/Resolved]
  - Cytomegalovirus infection [Recovered/Resolved]
  - Thyroiditis [Recovered/Resolved]
  - Gastrointestinal mucosal exfoliation [Recovered/Resolved]

NARRATIVE: CASE EVENT DATE: 20250618
